FAERS Safety Report 7516779-6 (Version None)
Quarter: 2011Q2

REPORT INFORMATION
  Report Type: 
  Country: None (occurrence: None)
  Receive Date: 20110601
  Receipt Date: 20110525
  Transmission Date: 20111010
  Serious: Yes (Hospitalization)
  Sender: FDA-Public Use
  Company Number: PHHY2011BA44704

PATIENT
  Sex: Female

DRUGS (1)
  1. AMOXICILLIN [Suspect]
     Dosage: 5 DF, ALL TOGETHER
     Route: 048

REACTIONS (3)
  - COMA [None]
  - OEDEMA PERIPHERAL [None]
  - ASCITES [None]
